FAERS Safety Report 10997136 (Version 1)
Quarter: 2015Q2

REPORT INFORMATION
  Report Type: Spontaneous
  Country: US (occurrence: None)
  Receive Date: 20150407
  Receipt Date: 20150407
  Transmission Date: 20150821
  Serious: Yes (Hospitalization)
  Sender: FDA-Public Use
  Company Number: None

PATIENT
  Age: 49 Year
  Sex: Female
  Weight: 51.1 kg

DRUGS (1)
  1. FEMARA [Suspect]
     Active Substance: LETROZOLE
     Dates: start: 20140731, end: 20150326

REACTIONS (5)
  - Diarrhoea [None]
  - Blood potassium increased [None]
  - Abdominal pain [None]
  - Rectal haemorrhage [None]
  - Blood potassium decreased [None]

NARRATIVE: CASE EVENT DATE: 20150326
